FAERS Safety Report 17544303 (Version 1)
Quarter: 2020Q1

REPORT INFORMATION
  Report Type: Spontaneous
  Country: DE (occurrence: DE)
  Receive Date: 20200316
  Receipt Date: 20200316
  Transmission Date: 20200409
  Serious: Yes (Hospitalization)
  Sender: FDA-Public Use
  Company Number: DE-TEVA-2020-DE-1198978

PATIENT
  Age: 90 Year
  Sex: Female

DRUGS (11)
  1. CALCIUM/COLECALCIFEROL [Concomitant]
     Active Substance: CALCIUM\CHOLECALCIFEROL
     Dosage: 500 | 400 MG / IU, 1-0-1-0, CHEWABLE TABLETS
  2. CARBIMAZOL [Concomitant]
     Active Substance: CARBIMAZOLE
     Dosage: 5 MG, 1-0-0-0
  3. METHYLPREDNISOLON [Suspect]
     Active Substance: METHYLPREDNISOLONE
     Dosage: 4 MG, 0.5-0-0-0
  4. VERTIGOHEEL [Concomitant]
     Active Substance: HOMEOPATHICS
     Dosage: 1-1-1-0
  5. PREGABALIN. [Suspect]
     Active Substance: PREGABALIN
     Dosage: 225 MG, PAUSED
  6. METAMIZOL [Suspect]
     Active Substance: METAMIZOLE SODIUM
     Dosage: 225 MG, PAUSED
  7. OXYCODON [Suspect]
     Active Substance: OXYCODONE
     Dosage: 10 MG, 1-0-0-0, RETARD
  8. ACETYLSALICYLS?URE [Concomitant]
     Active Substance: ASPIRIN
     Dosage: 100 MG, 1-0-0-0
  9. PANTOPRAZOL [Concomitant]
     Active Substance: PANTOPRAZOLE SODIUM
     Dosage: 40 MG, 1-0-0-0
  10. AMLODIPIN [Concomitant]
     Active Substance: AMLODIPINE BESYLATE
     Dosage: 5 MG, 1-0-0-0
  11. CANDESARTAN. [Concomitant]
     Active Substance: CANDESARTAN
     Dosage: 16 MG, 0-1-0-0

REACTIONS (12)
  - Aphasia [Unknown]
  - Restlessness [Unknown]
  - Vomiting [Unknown]
  - Disorientation [Unknown]
  - General physical health deterioration [Unknown]
  - Apathy [Unknown]
  - Tremor [Unknown]
  - Fluid intake reduced [Unknown]
  - Memory impairment [Unknown]
  - Musculoskeletal pain [Unknown]
  - Headache [Unknown]
  - Disturbance in attention [Unknown]
